FAERS Safety Report 9731645 (Version 1)
Quarter: 2013Q4

REPORT INFORMATION
  Report Type: Spontaneous
  Country: FI (occurrence: None)
  Receive Date: 20131203
  Receipt Date: 20131203
  Transmission Date: 20140711
  Serious: Yes (Death)
  Sender: FDA-Public Use
  Company Number: 2013P1021351

PATIENT
  Age: 80 Year
  Sex: Female

DRUGS (2)
  1. DIGOXIN [Suspect]
     Dosage: X1
     Dates: start: 20040622, end: 20040622
  2. DIXYRAZINE [Suspect]
     Dosage: X1

REACTIONS (5)
  - General physical health deterioration [None]
  - Cardioactive drug level increased [None]
  - Toxicity to various agents [None]
  - Victim of homicide [None]
  - Poisoning deliberate [None]
